FAERS Safety Report 5594564-2 (Version None)
Quarter: 2008Q1

REPORT INFORMATION
  Report Type: 
  Country: None (occurrence: None)
  Receive Date: 20080117
  Receipt Date: 20080107
  Transmission Date: 20080703
  Serious: Yes (Hospitalization)
  Sender: FDA-Public Use
  Company Number: JP-JNJFOC-20051203199

PATIENT
  Sex: Female
  Weight: 46 kg

DRUGS (31)
  1. REMICADE [Suspect]
     Route: 042
  2. REMICADE [Suspect]
     Route: 042
  3. REMICADE [Suspect]
     Route: 042
  4. REMICADE [Suspect]
     Route: 042
  5. REMICADE [Suspect]
     Route: 042
  6. REMICADE [Suspect]
     Dosage: 3 INFUSIONS ON UNSPECIFIED DATES
     Route: 042
  7. REMICADE [Suspect]
     Route: 042
  8. REMICADE [Suspect]
     Route: 042
  9. REMICADE [Suspect]
     Route: 042
  10. REMICADE [Suspect]
     Route: 042
  11. REMICADE [Suspect]
     Indication: RHEUMATOID ARTHRITIS
     Route: 042
  12. RHEUMATREX [Suspect]
     Indication: RHEUMATOID ARTHRITIS
     Route: 048
  13. PREDNISOLONE [Suspect]
     Route: 048
  14. PREDNISOLONE [Suspect]
     Route: 048
  15. PREDNISOLONE [Suspect]
     Route: 048
  16. PREDNISOLONE [Suspect]
     Indication: RHEUMATOID ARTHRITIS
     Route: 048
  17. ADRENAL HORMONE PREPARATIONS [Concomitant]
     Indication: RHEUMATOID ARTHRITIS
  18. INFREE [Concomitant]
     Indication: RHEUMATOID ARTHRITIS
     Route: 048
  19. LEUCOVORIN [Concomitant]
     Indication: FOLATE DEFICIENCY
     Route: 048
  20. INNOLET [Concomitant]
     Dosage: DAILY DOSE:  8UT
     Route: 058
  21. INNOLET [Concomitant]
     Indication: DIABETES MELLITUS
     Dosage: DAILY DOSE:  8 UT
     Route: 058
  22. BASEN [Concomitant]
     Indication: DIABETES MELLITUS
     Dosage: DAILY DOSE:  6 MG
     Route: 048
  23. GASTER D [Concomitant]
     Dosage: PROHYLAXIS AGAINST DIGESTIVE SYMPTOM DUE TO PREDNISOLONE
     Route: 048
  24. MUCOSTA [Concomitant]
     Indication: PROPHYLAXIS
     Route: 048
  25. BLOPRESS [Concomitant]
     Route: 048
  26. BLOPRESS [Concomitant]
     Indication: HYPERTENSION
     Route: 048
  27. ALFAROL [Concomitant]
     Dosage: DAILY DOSE:  1 RG
     Route: 048
  28. ALFAROL [Concomitant]
     Indication: OSTEOPOROSIS
     Dosage: DAILY DOSE:  1 RG
     Route: 048
  29. PREDONINE [Concomitant]
     Indication: RHEUMATOID ARTHRITIS
     Route: 048
  30. HYPEN [Concomitant]
     Indication: RHEUMATOID ARTHRITIS
     Route: 048
  31. PREDONINE [Concomitant]
     Route: 042

REACTIONS (1)
  - INTESTINAL ISCHAEMIA [None]
